FAERS Safety Report 11096175 (Version 1)
Quarter: 2015Q2

REPORT INFORMATION
  Report Type: Spontaneous
  Country: US (occurrence: None)
  Receive Date: 20150506
  Receipt Date: 20150506
  Transmission Date: 20150821
  Serious: Yes (Other)
  Sender: FDA-Public Use
  Company Number: None

PATIENT
  Age: 32 Year
  Sex: Female
  Weight: 79.38 kg

DRUGS (12)
  1. LOVASTATIN. [Concomitant]
     Active Substance: LOVASTATIN
  2. BIOTIN [Concomitant]
     Active Substance: BIOTIN
  3. VITAMIN D [Concomitant]
     Active Substance: CHOLECALCIFEROL
  4. B6 [Concomitant]
     Active Substance: PYRIDOXINE HYDROCHLORIDE
  5. CINNAMON. [Concomitant]
     Active Substance: CINNAMON
  6. FISH OIL [Concomitant]
     Active Substance: FISH OIL
  7. NATAZIA [Concomitant]
     Active Substance: DIENOGEST\ESTRADIOL VALERATE
  8. BYDUREON [Suspect]
     Active Substance: EXENATIDE
     Indication: TYPE 2 DIABETES MELLITUS
     Dosage: GIVEN INTO/UNDER THE SKIN
     Dates: start: 20141206, end: 20150106
  9. METFORMIN [Concomitant]
     Active Substance: METFORMIN HYDROCHLORIDE
  10. SPIROLACTONE [Concomitant]
     Active Substance: SPIRONOLACTONE
  11. TRADJENTA [Concomitant]
     Active Substance: LINAGLIPTIN
  12. MULTIVITAMIN [Concomitant]
     Active Substance: VITAMINS

REACTIONS (4)
  - Injection site pruritus [None]
  - Injection site pain [None]
  - Injection site mass [None]
  - Injection site warmth [None]

NARRATIVE: CASE EVENT DATE: 20150106
